FAERS Safety Report 6356725-4 (Version None)
Quarter: 2009Q3

REPORT INFORMATION
  Report Type: 
  Country: None (occurrence: None)
  Receive Date: 20090911
  Receipt Date: 20090911
  Transmission Date: 20100115
  Serious: Yes (Life-Threatening)
  Sender: FDA-Public Use
  Company Number: None

PATIENT
  Sex: Female
  Weight: 61.2356 kg

DRUGS (1)
  1. CHANTIX [Suspect]
     Indication: SMOKING CESSATION THERAPY
     Dosage: .5 MG ONCE/DAY AND .5 MG BID 1/DAY AND THEN BID PO 1 MG TWICE/DAY PO
     Route: 048
     Dates: start: 20090621, end: 20090706

REACTIONS (11)
  - AGITATION [None]
  - BINGE EATING [None]
  - CONDITION AGGRAVATED [None]
  - DEPRESSION [None]
  - HAEMORRHAGE [None]
  - IMPAIRED WORK ABILITY [None]
  - INTENTIONAL SELF-INJURY [None]
  - LIMB INJURY [None]
  - LOSS OF CONSCIOUSNESS [None]
  - SKIN LACERATION [None]
  - SUICIDE ATTEMPT [None]
